FAERS Safety Report 6370986-7 (Version None)
Quarter: 2009Q3

REPORT INFORMATION
  Report Type: 
  Country: None (occurrence: None)
  Receive Date: 20090921
  Receipt Date: 20090921
  Transmission Date: 20100115
  Serious: No
  Sender: FDA-Public Use
  Company Number: None

PATIENT
  Sex: Female
  Weight: 64.4108 kg

DRUGS (5)
  1. TOPIRAMATE [Suspect]
     Indication: ANXIETY DISORDER
     Dosage: 100MG 3X/DAY ORAL
     Route: 048
     Dates: start: 20090428, end: 20090522
  2. TOPIRAMATE [Suspect]
     Indication: BIPOLAR DISORDER
     Dosage: 100MG 3X/DAY ORAL
     Route: 048
     Dates: start: 20090428, end: 20090522
  3. TEGRETOL-XR [Concomitant]
  4. EFFEXOR XR [Concomitant]
  5. ZYPREXA [Concomitant]

REACTIONS (4)
  - ANXIETY [None]
  - HEADACHE [None]
  - MOOD SWINGS [None]
  - PRODUCT SUBSTITUTION ISSUE [None]
